FAERS Safety Report 15886826 (Version 1)
Quarter: 2019Q1

REPORT INFORMATION
  Report Type: Spontaneous
  Country: CN (occurrence: CN)
  Receive Date: 20190129
  Receipt Date: 20190129
  Transmission Date: 20190417
  Serious: Yes (Other)
  Sender: FDA-Public Use
  Company Number: CN-SUN PHARMACEUTICAL INDUSTRIES LTD-2019R1-197430

PATIENT
  Age: 76 Year
  Sex: Male

DRUGS (4)
  1. DOCETAXEL. [Suspect]
     Active Substance: DOCETAXEL
     Indication: LUNG SQUAMOUS CELL CARCINOMA STAGE IV
     Dosage: UNK
     Route: 065
  2. CISPLATIN. [Suspect]
     Active Substance: CISPLATIN
     Indication: LUNG SQUAMOUS CELL CARCINOMA STAGE IV
  3. ENDOSTAR [Suspect]
     Active Substance: ENDOSTATIN
     Indication: LUNG SQUAMOUS CELL CARCINOMA STAGE IV
     Dosage: ANGIOGENESIS INHIBITOR ENDOSTAR
     Route: 065
  4. ICOTINIB [Suspect]
     Active Substance: ICOTINIB
     Indication: LUNG SQUAMOUS CELL CARCINOMA STAGE IV

REACTIONS (1)
  - Gene mutation [Unknown]
